FAERS Safety Report 22068739 (Version 2)
Quarter: 2023Q1

REPORT INFORMATION
  Report Type: Spontaneous
  Country: US (occurrence: US)
  Receive Date: 20230307
  Receipt Date: 20230324
  Transmission Date: 20230418
  Serious: Yes (Hospitalization)
  Sender: FDA-Public Use
  Company Number: US-AMNEAL PHARMACEUTICALS-2022-AMRX-02910

PATIENT
  Age: 58 Year
  Sex: Male

DRUGS (4)
  1. RYTARY [Suspect]
     Active Substance: CARBIDOPA\LEVODOPA
     Indication: Product used for unknown indication
     Dosage: 3 CAPSULES (36.25/145MG), 3 /DAY
     Route: 048
  2. RYTARY [Suspect]
     Active Substance: CARBIDOPA\LEVODOPA
     Dosage: 3 CAPSULES IN THE AM, 2 CAPSULES IN THE EVENING, AND 3 CAPSULES IN THE PM
     Route: 048
     Dates: start: 2022
  3. RYTARY [Suspect]
     Active Substance: CARBIDOPA\LEVODOPA
     Dosage: 3 CAPSULES (48.75/195MG), 3 CAPSULES IN MORNING, 3 CAPSULES AT NOON, 3 CAPSULES IN EVENING
     Route: 048
  4. RYTARY [Suspect]
     Active Substance: CARBIDOPA\LEVODOPA
     Dosage: 3 CAPSULES (48.75/195MG), 3 CAPSULES IN MORNING, 3 CAPSULES IN EVENING, 3 CAPSULES BEFORE BEDTIME
     Route: 048

REACTIONS (15)
  - Hyponatraemia [Unknown]
  - Hallucination, visual [Unknown]
  - Muscle spasms [Unknown]
  - Dehydration [Unknown]
  - Dyspnoea [Unknown]
  - Chest pain [Unknown]
  - Abdominal pain upper [Unknown]
  - Fall [Unknown]
  - Nasopharyngitis [Unknown]
  - Dyspepsia [Unknown]
  - Anger [Unknown]
  - Amnesia [Unknown]
  - Tremor [Unknown]
  - Nausea [Unknown]
  - Product dose omission issue [Unknown]

NARRATIVE: CASE EVENT DATE: 20220818
